FAERS Safety Report 6738430-5 (Version None)
Quarter: 2010Q2

REPORT INFORMATION
  Report Type: 
  Country: None (occurrence: None)
  Receive Date: 20100520
  Receipt Date: 20100504
  Transmission Date: 20101027
  Serious: Yes (Hospitalization)
  Sender: FDA-Public Use
  Company Number: DSU-2010-01914

PATIENT
  Age: 66 Year
  Sex: Female

DRUGS (1)
  1. BENICAR [Suspect]
     Indication: HYPERTENSION
     Dosage: 20 MG (20 MG, QD), PER ORAL
     Route: 048
     Dates: start: 20100401, end: 20100430

REACTIONS (3)
  - BLOOD PRESSURE DECREASED [None]
  - COELIAC DISEASE [None]
  - DEHYDRATION [None]
